FAERS Safety Report 6704541-3 (Version None)
Quarter: 2010Q2

REPORT INFORMATION
  Report Type: 
  Country: None (occurrence: None)
  Receive Date: 20100430
  Receipt Date: 20100422
  Transmission Date: 20101027
  Serious: Yes (Other)
  Sender: FDA-Public Use
  Company Number: PHHY2010KR22798

PATIENT
  Age: 64 Year
  Sex: Female

DRUGS (8)
  1. SANDOSTATIN [Suspect]
     Indication: POSTOPERATIVE CARE
     Dosage: 0.3 MG/DAY
     Route: 058
     Dates: start: 20100406
  2. VITAMIN K TAB [Concomitant]
     Dosage: UNK
  3. CURAN [Concomitant]
     Dosage: UNK
  4. MUCOSTEN [Concomitant]
     Dosage: UNK
  5. CEFOTIAM [Concomitant]
     Dosage: UNK
  6. ISEPACIN [Concomitant]
     Dosage: UNK
  7. FUTHAN [Concomitant]
     Dosage: UNK
  8. ANTIHYPERTENSIVE DRUGS [Concomitant]
     Dosage: UNK

REACTIONS (4)
  - CHILLS [None]
  - IRRITABILITY [None]
  - NAUSEA [None]
  - STUPOR [None]
